FAERS Safety Report 9742672 (Version 1)
Quarter: 2013Q4

REPORT INFORMATION
  Report Type: Spontaneous
  Country: US (occurrence: US)
  Receive Date: 20131210
  Receipt Date: 20131210
  Transmission Date: 20140711
  Serious: Yes (Other)
  Sender: FDA-Public Use
  Company Number: US-GILEAD-2009-0025301

PATIENT
  Age: 68 Year
  Sex: Female

DRUGS (12)
  1. LETAIRIS [Suspect]
     Indication: PULMONARY ARTERIAL HYPERTENSION
     Route: 048
     Dates: start: 20091027, end: 20091028
  2. WARFARIN [Concomitant]
  3. FUROSEMIDE [Concomitant]
  4. LISINOPRIL [Concomitant]
  5. FELODIPINE ER [Concomitant]
  6. NOVOLOG [Concomitant]
  7. CALCIUM [Concomitant]
  8. MAGNESIUM [Concomitant]
  9. ASPIRIN [Concomitant]
  10. ZETIA [Concomitant]
  11. BENTYL [Concomitant]
  12. KLOR-CON [Concomitant]

REACTIONS (4)
  - Cardiac failure congestive [Unknown]
  - Heart rate increased [Unknown]
  - Fluid retention [Unknown]
  - Dyspnoea [Unknown]
